FAERS Safety Report 12138253 (Version 12)
Quarter: 2019Q1

REPORT INFORMATION
  Report Type: Report from Study
  Country: US (occurrence: US)
  Receive Date: 20160302
  Receipt Date: 20190126
  Transmission Date: 20190417
  Serious: Yes (Hospitalization, Other)
  Sender: FDA-Public Use
  Company Number: US-ARIAD PHARMACEUTICALS, INC-2015US005103

PATIENT
  Age: 37 Year
  Sex: Male

DRUGS (11)
  1. PONATINIB [Suspect]
     Active Substance: PONATINIB
     Dosage: 45 MG, QD
     Route: 048
  2. PONATINIB [Suspect]
     Active Substance: PONATINIB
     Dosage: 30 MG, QD
     Route: 048
  3. PONATINIB [Suspect]
     Active Substance: PONATINIB
     Dosage: 45 MG, QD
     Route: 048
  4. PONATINIB [Suspect]
     Active Substance: PONATINIB
     Dosage: 30 MG, QD
     Route: 048
  5. PONATINIB [Suspect]
     Active Substance: PONATINIB
     Dosage: 30 MG, QD
     Route: 048
     Dates: start: 20150120
  6. PONATINIB [Suspect]
     Active Substance: PONATINIB
     Dosage: 45 MG, QD
     Route: 048
  7. PONATINIB [Suspect]
     Active Substance: PONATINIB
     Dosage: 30 MG, QD
     Route: 048
  8. PONATINIB [Suspect]
     Active Substance: PONATINIB
     Dosage: 15 MG, QD
     Route: 048
  9. PONATINIB [Suspect]
     Active Substance: PONATINIB
     Dosage: 45 MG, QD
     Route: 048
  10. PONATINIB [Suspect]
     Active Substance: PONATINIB
     Indication: CHRONIC MYELOID LEUKAEMIA
     Dosage: 30 MG, QD
     Route: 048
     Dates: start: 20141230
  11. PONATINIB [Suspect]
     Active Substance: PONATINIB
     Dosage: 30 MG, QD
     Route: 048
     Dates: start: 20180112

REACTIONS (47)
  - Lactic acidosis [Not Recovered/Not Resolved]
  - Eye irritation [Unknown]
  - Neuralgia [Unknown]
  - Erectile dysfunction [Unknown]
  - Vision blurred [Not Recovered/Not Resolved]
  - Cough [Unknown]
  - Monocyte count increased [Unknown]
  - Eye discharge [Unknown]
  - Chest discomfort [Unknown]
  - Dry eye [Unknown]
  - Hypoaesthesia [Not Recovered/Not Resolved]
  - Infection [Not Recovered/Not Resolved]
  - Muscle spasms [Unknown]
  - Retinal drusen [Unknown]
  - Eye pain [Unknown]
  - Sleep apnoea syndrome [Unknown]
  - White blood cell count increased [Not Recovered/Not Resolved]
  - Paraesthesia [Unknown]
  - Wheezing [Unknown]
  - Abdominal tenderness [Not Recovered/Not Resolved]
  - Epistaxis [Not Recovered/Not Resolved]
  - Headache [Not Recovered/Not Resolved]
  - Rash [Recovered/Resolved]
  - Arthralgia [Unknown]
  - Gastroenteritis [Recovered/Resolved]
  - Photophobia [Not Recovered/Not Resolved]
  - Pallor [Not Recovered/Not Resolved]
  - Oropharyngeal pain [Unknown]
  - Fatigue [Not Recovered/Not Resolved]
  - Visual impairment [Not Recovered/Not Resolved]
  - Viral infection [Unknown]
  - Sepsis [Recovered/Resolved]
  - Diplopia [Unknown]
  - Palpitations [Unknown]
  - Age-related macular degeneration [Unknown]
  - Blood urine present [Unknown]
  - Skin exfoliation [Unknown]
  - Pain in jaw [Not Recovered/Not Resolved]
  - Dyspnoea [Unknown]
  - Hypercholesterolaemia [Not Recovered/Not Resolved]
  - Nail disorder [Unknown]
  - Pruritus [Unknown]
  - Blood potassium decreased [Unknown]
  - Dry skin [Not Recovered/Not Resolved]
  - Peripheral swelling [Unknown]
  - Product packaging issue [Unknown]
  - Product dose omission [Unknown]

NARRATIVE: CASE EVENT DATE: 20160201
